FAERS Safety Report 22757722 (Version 5)
Quarter: 2024Q2

REPORT INFORMATION
  Report Type: Report from Study
  Country: US (occurrence: US)
  Receive Date: 20230727
  Receipt Date: 20240517
  Transmission Date: 20240717
  Serious: Yes (Hospitalization)
  Sender: FDA-Public Use
  Company Number: US-BAUSCH-BL-2023-011458

PATIENT
  Age: 50 Year
  Sex: Male

DRUGS (1)
  1. XIFAXAN [Suspect]
     Active Substance: RIFAXIMIN
     Indication: Hepatic encephalopathy
     Dosage: ESTIMATED LENGTH OF TREATMENT: DURATION 24 MONTHS
     Route: 048

REACTIONS (5)
  - Gastric infection [Unknown]
  - Hepatic cirrhosis [Unknown]
  - Platelet transfusion [Unknown]
  - Haematuria [Recovered/Resolved]
  - Ascites [Unknown]

NARRATIVE: CASE EVENT DATE: 20230622
